FAERS Safety Report 19510961 (Version 1)
Quarter: 2021Q3

REPORT INFORMATION
  Report Type: Spontaneous
  Country: US (occurrence: US)
  Receive Date: 20210709
  Receipt Date: 20210709
  Transmission Date: 20211014
  Serious: Yes (Death, Hospitalization, Other)
  Sender: FDA-Public Use
  Company Number: US-AMGEN-USASP2021103888

PATIENT
  Age: 85 Year
  Sex: Male

DRUGS (1)
  1. FILGRASTIM [Suspect]
     Active Substance: FILGRASTIM
     Indication: FEBRILE NEUTROPENIA
     Dosage: UNK
     Route: 065

REACTIONS (7)
  - Streptococcus test positive [Unknown]
  - Erythrophagocytosis [Unknown]
  - Enterococcus test positive [Unknown]
  - Systemic mycosis [Unknown]
  - Drug ineffective [Unknown]
  - Death [Fatal]
  - Clostridium test positive [Unknown]
